FAERS Safety Report 7079795-7 (Version None)
Quarter: 2010Q4

REPORT INFORMATION
  Report Type: 
  Country: None (occurrence: None)
  Receive Date: 20101102
  Receipt Date: 20101027
  Transmission Date: 20110411
  Serious: Yes (Other)
  Sender: FDA-Public Use
  Company Number: BR-PFIZER INC-2010126167

PATIENT
  Age: 60 Year
  Sex: Female
  Weight: 69 kg

DRUGS (9)
  1. CHAMPIX [Suspect]
     Indication: TOBACCO USER
     Dosage: 0.5 MG, 1X/DAY
     Route: 048
     Dates: start: 20101004
  2. FORASEQ [Concomitant]
     Indication: LUNG DISORDER
     Dosage: UNK
  3. LEXAPRO [Concomitant]
     Indication: DEPRESSION
     Dosage: UNK
  4. RIVOTRIL [Concomitant]
     Indication: RELAXATION THERAPY
     Dosage: UNK
  5. CIMICIFUGA [Concomitant]
     Indication: HORMONE THERAPY
     Dosage: UNK
  6. METFORMIN HYDROCHLORIDE/VILDAGLIPTIN [Concomitant]
     Indication: DIABETES MELLITUS
     Dosage: UNK
  7. EZETIMIBE/SIMVASTATIN [Concomitant]
     Indication: BLOOD CHOLESTEROL
     Dosage: UNK
  8. VYTORIN [Concomitant]
     Indication: BLOOD CHOLESTEROL
     Dosage: UNK
  9. NICOTINIC ACID [Concomitant]
     Indication: HIGH DENSITY LIPOPROTEIN ABNORMAL
     Dosage: UNK

REACTIONS (1)
  - DUODENITIS [None]
